FAERS Safety Report 14714074 (Version 1)
Quarter: 2018Q2

REPORT INFORMATION
  Report Type: Spontaneous
  Country: ES (occurrence: ES)
  Receive Date: 20180404
  Receipt Date: 20180404
  Transmission Date: 20180711
  Serious: Yes (Life-Threatening, Hospitalization)
  Sender: FDA-Public Use
  Company Number: ES-ASTRAZENECA-2018SE38997

PATIENT
  Age: 73 Year
  Sex: Male

DRUGS (1)
  1. CRESTOR [Suspect]
     Active Substance: ROSUVASTATIN CALCIUM
     Route: 048
     Dates: start: 2017

REACTIONS (2)
  - Pain in extremity [Not Recovered/Not Resolved]
  - Pneumoperitoneum [Not Recovered/Not Resolved]

NARRATIVE: CASE EVENT DATE: 201712
